FAERS Safety Report 5355885-1 (Version None)
Quarter: 2007Q2

REPORT INFORMATION
  Report Type: 
  Country: None (occurrence: None)
  Receive Date: 20070613
  Receipt Date: 20070601
  Transmission Date: 20071010
  Serious: Yes (Hospitalization)
  Sender: FDA-Public Use
  Company Number: JP-ROCHE-500243

PATIENT
  Age: 18 Year
  Sex: Male

DRUGS (9)
  1. DENOSINE IV [Suspect]
     Indication: PNEUMONIA CYTOMEGALOVIRAL
     Dosage: FORM REPORTED AS INFUSION.
     Route: 041
     Dates: start: 20060905, end: 20060912
  2. DENOSINE IV [Suspect]
     Route: 041
     Dates: start: 20060925, end: 20061003
  3. BACTRIM [Suspect]
     Route: 041
     Dates: start: 20060906, end: 20060910
  4. BACTRIM [Suspect]
     Route: 041
     Dates: start: 20060911, end: 20061002
  5. SOLU-MEDROL [Concomitant]
     Route: 041
     Dates: start: 20060909, end: 20060911
  6. VENOGLOBULIN [Concomitant]
  7. IMMUNE GLOBULIN INTRAVENOUS (HUMAN) [Concomitant]
     Dosage: REPORTED DRUG NAME: GAMMA GLOBULIN.
     Route: 051
  8. ANTIFUNGAL AGENT NOS [Concomitant]
     Dosage: STARTED AFTER CT SCAN ON 05 SEPTEMBER 2006.
     Dates: start: 20060905
  9. CMV IMMUNE GLOBULIN [Concomitant]
     Route: 042
     Dates: start: 20060905

REACTIONS (2)
  - BONE MARROW FAILURE [None]
  - RENAL IMPAIRMENT [None]
